FAERS Safety Report 5895552-9 (Version None)
Quarter: 2008Q3

REPORT INFORMATION
  Report Type: 
  Country: None (occurrence: None)
  Receive Date: 20080924
  Receipt Date: 20080115
  Transmission Date: 20090109
  Serious: No
  Sender: FDA-Public Use
  Company Number: US-ASTRAZENECA-2006UW07850

PATIENT
  Age: 41 Year
  Sex: Female
  Weight: 96.2 kg

DRUGS (8)
  1. SEROQUEL [Suspect]
     Indication: SCHIZOPHRENIA
     Route: 048
     Dates: start: 19980101, end: 20050101
  2. SEROQUEL [Suspect]
     Indication: BIPOLAR DISORDER
     Route: 048
     Dates: start: 19980101, end: 20050101
  3. SEROQUEL [Suspect]
     Indication: DEPRESSION
     Route: 048
     Dates: start: 19980101, end: 20050101
  4. ABILIFY [Concomitant]
     Dates: start: 20060101
  5. RISPERDAL [Concomitant]
     Dates: start: 19980101, end: 20010101
  6. THORAZINE [Concomitant]
  7. ZYPREXA [Concomitant]
  8. METHADONE HCL [Concomitant]
     Dates: start: 20020101, end: 20030101

REACTIONS (2)
  - GALLBLADDER DISORDER [None]
  - TYPE 2 DIABETES MELLITUS [None]
